FAERS Safety Report 23353547 (Version 1)
Quarter: 2023Q4

REPORT INFORMATION
  Report Type: Spontaneous
  Country: IT (occurrence: None)
  Receive Date: 20231231
  Receipt Date: 20231231
  Transmission Date: 20240109
  Serious: Yes (Life-Threatening, Hospitalization, Other)
  Sender: FDA-Public Use
  Company Number: 2023A294159

PATIENT
  Age: 77 Year
  Sex: Male
  Weight: 73 kg

DRUGS (1)
  1. TAGRISSO [Suspect]
     Active Substance: OSIMERTINIB
     Indication: Lung neoplasm
     Dosage: 80 MG/DIE80.0MG UNKNOWN
     Route: 048
     Dates: start: 20230711, end: 20230724

REACTIONS (8)
  - Dyspnoea [Recovered/Resolved]
  - Eosinophil count increased [Not Recovered/Not Resolved]
  - Cough [Recovered/Resolved]
  - Hypersensitivity pneumonitis [Recovered/Resolved]
  - Leukocytosis [Not Recovered/Not Resolved]
  - Pyrexia [Recovered/Resolved]
  - Paraesthesia [Recovered/Resolved]
  - Asthenia [Recovered/Resolved]

NARRATIVE: CASE EVENT DATE: 20230715
